FAERS Safety Report 7575975-2 (Version None)
Quarter: 2011Q2

REPORT INFORMATION
  Report Type: 
  Country: None (occurrence: None)
  Receive Date: 20110628
  Receipt Date: 20090625
  Transmission Date: 20111010
  Serious: Yes (Other)
  Sender: FDA-Public Use
  Company Number: US-BAYER-200924271NA

PATIENT
  Age: 77 Year
  Sex: Female
  Weight: 77 kg

DRUGS (14)
  1. ZOCOR [Concomitant]
     Dosage: 40 MG, UNK
     Route: 048
     Dates: start: 20040101, end: 20090101
  2. LASIX [Concomitant]
     Dosage: 40 MG, UNK
     Route: 048
     Dates: start: 19900101
  3. LASIX [Concomitant]
     Dosage: 20 UNK, BYPASS
     Dates: start: 20050210, end: 20050210
  4. FENTANYL [Concomitant]
     Dosage: 10 ML, UNK
     Route: 042
     Dates: start: 20050210, end: 20050210
  5. MANNITOL [Concomitant]
     Dosage: 25 G, BYPASS
     Dates: start: 20050210, end: 20050210
  6. TRASYLOL [Suspect]
     Indication: PRODUCT USED FOR UNKNOWN INDICATION
     Dosage: 100 ML LOADING DOSE FOLLOWED BY 25 ML/HOUR INFUSION
     Route: 042
     Dates: start: 20050210, end: 20050210
  7. ANCEF [Concomitant]
     Dosage: 2 G, UNK
     Route: 042
     Dates: start: 20050210, end: 20050210
  8. TRASYLOL [Suspect]
     Indication: CORONARY ENDARTERECTOMY
  9. PLAVIX [Concomitant]
     Dosage: 75 MG, QD
     Dates: start: 20040101, end: 20050201
  10. HEPARIN [Concomitant]
     Dosage: 22,000 UNITS, BYPASS
     Dates: start: 20050210, end: 20050210
  11. ACETYLSALICYLIC ACID SRT [Concomitant]
     Dosage: 325 MG, QD
     Route: 048
     Dates: start: 20040101, end: 20050201
  12. DILTIAZEM [Concomitant]
     Dosage: 240 MG, UNK
     Route: 048
     Dates: start: 20020101, end: 20050101
  13. LIPITOR [Concomitant]
     Dosage: 10 MG, UNK
     Route: 048
     Dates: start: 20020101
  14. ESMOLOL [Concomitant]
     Dosage: 30 MG, UNK
     Route: 042
     Dates: start: 20050210, end: 20050210

REACTIONS (9)
  - RENAL IMPAIRMENT [None]
  - RENAL INJURY [None]
  - FEAR [None]
  - RENAL FAILURE [None]
  - STRESS [None]
  - UNEVALUABLE EVENT [None]
  - ANXIETY [None]
  - EMOTIONAL DISTRESS [None]
  - PAIN [None]
